FAERS Safety Report 22280857 (Version 7)
Quarter: 2024Q4

REPORT INFORMATION
  Report Type: Report from Study
  Country: BR (occurrence: BR)
  Receive Date: 20230503
  Receipt Date: 20241124
  Transmission Date: 20250115
  Serious: Yes (Other)
  Sender: CELLTRION
  Company Number: BR-CELLTRION INC.-2023BR009124

PATIENT

DRUGS (3)
  1. INFLIXIMAB-DYYB [Suspect]
     Active Substance: INFLIXIMAB-DYYB
     Indication: Crohn^s disease
     Dosage: 3 AMPOLUES EVERY 1 MONTHS / 3 AMPOULES OF 100 MG (300 MG TOTAL) EVERY 1 MONTH
     Route: 042
     Dates: start: 20230307
  2. INFLIXIMAB-DYYB [Suspect]
     Active Substance: INFLIXIMAB-DYYB
     Dosage: 3 VIALS PER MONTH
     Route: 042
     Dates: start: 20240709
  3. INFLIXIMAB-DYYB [Suspect]
     Active Substance: INFLIXIMAB-DYYB
     Dosage: 3 AMPOULES OF 100 MG (300 MG TOTAL) EVERY 1 MONTH
     Route: 042
     Dates: start: 20241010

REACTIONS (8)
  - Vaginal fistula [Unknown]
  - Drain site complication [Unknown]
  - Vaginal abscess [Unknown]
  - Cystitis [Recovered/Resolved]
  - Nausea [Recovered/Resolved]
  - Intentional dose omission [Unknown]
  - Intentional dose omission [Unknown]
  - Intentional product use issue [Unknown]

NARRATIVE: CASE EVENT DATE: 20230421
